FAERS Safety Report 21197025 (Version 1)
Quarter: 2022Q3

REPORT INFORMATION
  Report Type: Spontaneous
  Country: DE (occurrence: DE)
  Receive Date: 20220810
  Receipt Date: 20220810
  Transmission Date: 20221027
  Serious: Yes (Other)
  Sender: FDA-Public Use
  Company Number: DE-PFIZER INC-202200827962

PATIENT
  Age: 44 Year
  Sex: Male

DRUGS (3)
  1. MITOXANTRONE [Suspect]
     Active Substance: MITOXANTRONE HYDROCHLORIDE
     Indication: Myeloid leukaemia
     Dosage: 170 MG MITOXANTRONE, EQUIVALENT TO 100 MG/SQ. METER, IN TOTAL
  2. CYTARABINE [Concomitant]
     Active Substance: CYTARABINE
     Indication: Acute myeloid leukaemia
     Dosage: DAY 1 TWO DOSES OF 3 MILLIGRAM/SQ.METER
     Route: 065
  3. CYTARABINE [Concomitant]
     Active Substance: CYTARABINE
     Dosage: DAY 2 ONE DOSE OF 3 G M -2

REACTIONS (7)
  - Amylase increased [Recovered/Resolved]
  - Cardiac failure congestive [Unknown]
  - Myelosuppression [Unknown]
  - Accidental overdose [Unknown]
  - Back pain [Recovered/Resolved]
  - Chills [Recovered/Resolved]
  - Nausea [Recovered/Resolved]
